FAERS Safety Report 8594680-7 (Version None)
Quarter: 2012Q3

REPORT INFORMATION
  Report Type: 
  Country: None (occurrence: None)
  Receive Date: 20120815
  Receipt Date: 20120810
  Transmission Date: 20120928
  Serious: No
  Sender: FDA-Public Use
  Company Number: US-PFIZER INC-2012195956

PATIENT
  Age: 50 Year
  Sex: Female
  Weight: 62.585 kg

DRUGS (2)
  1. ESTRING [Suspect]
     Indication: VULVOVAGINAL DRYNESS
     Dosage: UNK
     Route: 067
     Dates: start: 20120719, end: 20120810
  2. ESTRING [Suspect]
     Indication: HORMONE REPLACEMENT THERAPY

REACTIONS (1)
  - VULVOVAGINAL DISCOMFORT [None]
